FAERS Safety Report 19858721 (Version 1)
Quarter: 2021Q3

REPORT INFORMATION
  Report Type: Spontaneous
  Country: US (occurrence: US)
  Receive Date: 20210921
  Receipt Date: 20210921
  Transmission Date: 20211014
  Serious: No
  Sender: FDA-Public Use
  Company Number: US-AUROBINDO-AUR-APL-2020-050828

PATIENT
  Age: 75 Year
  Sex: Female

DRUGS (2)
  1. ALENDRONATE SODIUM TABLETS USP 70MG [Suspect]
     Active Substance: ALENDRONATE SODIUM
     Indication: PRODUCT USED FOR UNKNOWN INDICATION
     Dosage: UNK, EVERY WEEK
     Route: 065
  2. ALENDRONATE SODIUM TABLETS USP 70MG [Suspect]
     Active Substance: ALENDRONATE SODIUM
     Dosage: RESUMED THE THERAPY
     Route: 065

REACTIONS (6)
  - Peripheral swelling [Unknown]
  - Osteoporosis [Unknown]
  - Condition aggravated [Unknown]
  - Joint swelling [Unknown]
  - Tooth resorption [Unknown]
  - Adverse event [Unknown]
